FAERS Safety Report 23854891 (Version 2)
Quarter: 2024Q3

REPORT INFORMATION
  Report Type: Spontaneous
  Country: US (occurrence: US)
  Receive Date: 20240514
  Receipt Date: 20240812
  Transmission Date: 20241017
  Serious: No
  Sender: ANI
  Company Number: US-ANIPHARMA-2024-US-008649

PATIENT
  Sex: Female

DRUGS (15)
  1. CORTICOTROPIN [Suspect]
     Active Substance: CORTICOTROPIN
     Indication: Polyarthritis
     Dosage: 1 ML TWICE WEEKLY
     Route: 058
  2. OMEPRAZOLE [Concomitant]
     Active Substance: OMEPRAZOLE
     Route: 065
  3. LISINOPRIL [Concomitant]
     Active Substance: LISINOPRIL
     Route: 065
  4. PRAVASTATIN SODIUM [Concomitant]
     Active Substance: PRAVASTATIN SODIUM
     Route: 065
  5. MECLIZINE HYDROCHLORIDE [Concomitant]
     Active Substance: MECLIZINE HYDROCHLORIDE
     Route: 065
  6. ENBREL [Concomitant]
     Active Substance: BENZYL ALCOHOL\ETANERCEPT
     Route: 065
  7. TRAMADOL [Concomitant]
     Active Substance: TRAMADOL\TRAMADOL HYDROCHLORIDE
  8. VITAMIN D3 [Concomitant]
     Active Substance: CHOLECALCIFEROL
     Route: 065
  9. MELATONIN [Concomitant]
     Active Substance: MELATONIN
     Route: 065
  10. ALIGN [Concomitant]
     Active Substance: BIFIDOBACTERIUM LONGUM SUBSP. INFANTIS
     Route: 065
  11. ORENCIA [Concomitant]
     Active Substance: ABATACEPT
     Route: 065
  12. Daily Multi Vitamin [Concomitant]
     Route: 065
  13. ASPIRIN [Concomitant]
     Active Substance: ASPIRIN
     Route: 065
  14. LEVOTHYROXINE SODIUM [Concomitant]
     Active Substance: LEVOTHYROXINE SODIUM
     Route: 065
  15. ESCITALOPRAM OXALATE [Concomitant]
     Active Substance: ESCITALOPRAM OXALATE
     Route: 065

REACTIONS (9)
  - Drug ineffective for unapproved indication [Not Recovered/Not Resolved]
  - Limb discomfort [Unknown]
  - Weight increased [Unknown]
  - Swelling face [Not Recovered/Not Resolved]
  - Peripheral swelling [Not Recovered/Not Resolved]
  - Product use in unapproved indication [Not Recovered/Not Resolved]
  - Insomnia [Unknown]
  - Fatigue [Unknown]
  - Pain [Unknown]
